FAERS Safety Report 5116751-X (Version None)
Quarter: 2006Q3

REPORT INFORMATION
  Report Type: 
  Country: None (occurrence: None)
  Receive Date: 20060925
  Receipt Date: 20060914
  Transmission Date: 20061208
  Serious: Yes (Death, Hospitalization, Other)
  Sender: FDA-Public Use
  Company Number: 2006112611

PATIENT
  Age: 52 Year
  Sex: Female

DRUGS (5)
  1. ZOLOFT [Suspect]
     Dosage: ORAL
     Route: 048
  2. IBUPROFEN [Suspect]
     Dosage: ORAL
     Route: 048
  3. LOXAPINE [Suspect]
     Dosage: ORAL
     Route: 048
  4. SYMMETREL [Suspect]
     Dosage: ORAL
     Route: 048
  5. DALMANE [Suspect]

REACTIONS (6)
  - AGITATION [None]
  - BODY TEMPERATURE INCREASED [None]
  - CARDIO-RESPIRATORY ARREST [None]
  - CONFUSIONAL STATE [None]
  - LIVER FUNCTION TEST ABNORMAL [None]
  - STATUS EPILEPTICUS [None]
